FAERS Safety Report 8634183 (Version 4)
Quarter: 2013Q1

REPORT INFORMATION
  Report Type: Spontaneous
  Country: US (occurrence: US)
  Receive Date: 20120626
  Receipt Date: 20130318
  Transmission Date: 20140127
  Serious: No
  Sender: FDA-Public Use
  Company Number: US-PFIZER INC-2012150372

PATIENT
  Age: 57 Year
  Sex: Female
  Weight: 49.89 kg

DRUGS (4)
  1. LYRICA [Suspect]
     Indication: COMPLEX REGIONAL PAIN SYNDROME
     Dosage: 100 MG, 2X/DAY
     Dates: start: 201207, end: 2012
  2. LYRICA [Suspect]
     Indication: NEURALGIA
  3. LYRICA [Suspect]
     Indication: NERVE INJURY
  4. GABAPENTIN [Suspect]
     Dosage: UNK

REACTIONS (9)
  - Vision blurred [Unknown]
  - Mood altered [Unknown]
  - Paraesthesia [Unknown]
  - Psoriasis [Unknown]
  - Depression [Recovering/Resolving]
  - Local swelling [Unknown]
  - Feeling abnormal [Not Recovered/Not Resolved]
  - Dizziness [Not Recovered/Not Resolved]
  - Balance disorder [Not Recovered/Not Resolved]
